FAERS Safety Report 24867170 (Version 1)
Quarter: 2025Q1

REPORT INFORMATION
  Report Type: Spontaneous
  Country: US (occurrence: None)
  Receive Date: 20250117
  Receipt Date: 20250117
  Transmission Date: 20250408
  Serious: Yes (Hospitalization)
  Sender: FDA-CTU
  Company Number: None

PATIENT
  Sex: Female

DRUGS (8)
  1. CREON [Suspect]
     Active Substance: PANCRELIPASE AMYLASE\PANCRELIPASE LIPASE\PANCRELIPASE PROTEASE
     Indication: Pancreatic disorder
     Dosage: FREQUENCY : DAILY;?
     Dates: start: 20170815
  2. INSULIN ASPART [Concomitant]
     Active Substance: INSULIN ASPART
  3. LAMICTAL [Concomitant]
     Active Substance: LAMOTRIGINE
  4. LANTUS SOLOSTAR [Concomitant]
     Active Substance: INSULIN GLARGINE
  5. MAGNESIUM OXIDE [Concomitant]
     Active Substance: MAGNESIUM OXIDE
  6. NOVOLOG [Concomitant]
     Active Substance: INSULIN ASPART
  7. TRUE METRIX BLOOD GLUCOSE [Concomitant]
  8. TRUEPLUS LANCETS 33G [Concomitant]

REACTIONS (1)
  - Hospitalisation [None]
